FAERS Safety Report 17538891 (Version 1)
Quarter: 2020Q1

REPORT INFORMATION
  Report Type: Report from Study
  Country: None (occurrence: NL)
  Receive Date: 20200313
  Receipt Date: 20200313
  Transmission Date: 20200409
  Serious: Yes (Death)
  Sender: FDA-Public Use
  Company Number: NL-ABBVIE-20K-114-3230291-00

PATIENT
  Sex: Female

DRUGS (4)
  1. VENETOCLAX. [Suspect]
     Active Substance: VENETOCLAX
     Indication: ACUTE MYELOID LEUKAEMIA
     Route: 048
  2. DECITABINE. [Suspect]
     Active Substance: DECITABINE
     Indication: ACUTE MYELOID LEUKAEMIA
     Route: 065
  3. DECITABINE. [Suspect]
     Active Substance: DECITABINE
     Route: 065
     Dates: start: 20191008, end: 20191018
  4. DECITABINE. [Suspect]
     Active Substance: DECITABINE
     Route: 065
     Dates: start: 201909, end: 2019

REACTIONS (6)
  - Anal abscess [Unknown]
  - Proctalgia [Unknown]
  - Off label use [Unknown]
  - Death [Fatal]
  - General physical health deterioration [Unknown]
  - Neutropenia [Not Recovered/Not Resolved]
